FAERS Safety Report 6813991-6 (Version None)
Quarter: 2010Q3

REPORT INFORMATION
  Report Type: 
  Country: None (occurrence: None)
  Receive Date: 20100702
  Receipt Date: 20100622
  Transmission Date: 20110219
  Serious: Yes (Death, Hospitalization)
  Sender: FDA-Public Use
  Company Number: GB-ABBOTT-10P-167-0640810-00

PATIENT
  Age: 62 Year
  Sex: Male

DRUGS (12)
  1. HUMIRA [Suspect]
     Indication: RHEUMATOID ARTHRITIS
     Dates: start: 20090909, end: 20091021
  2. METHOTREXATE [Concomitant]
     Indication: RHEUMATOID ARTHRITIS
     Route: 048
     Dates: start: 20020101, end: 20091001
  3. RANITIDINE [Concomitant]
     Indication: PRODUCT USED FOR UNKNOWN INDICATION
     Dosage: PRE 2001
     Route: 048
  4. FERROUS SULFATE TAB [Concomitant]
     Indication: PRODUCT USED FOR UNKNOWN INDICATION
     Dates: end: 20050101
  5. WARFARIN SODIUM [Concomitant]
     Indication: CARDIOMYOPATHY
     Route: 048
  6. BISOPROLOL FUMARATE [Concomitant]
     Indication: CARDIOMYOPATHY
     Route: 048
  7. FOLIC ACID [Concomitant]
     Indication: PRODUCT USED FOR UNKNOWN INDICATION
     Route: 048
     Dates: start: 20020101
  8. CALCICHEW D3 [Concomitant]
     Indication: OSTEOPENIA
     Route: 048
  9. ACETAMINOPHEN AND CODEINE PHOSPHATE [Concomitant]
     Indication: PRODUCT USED FOR UNKNOWN INDICATION
     Route: 048
  10. SPIRONOLACTONE [Concomitant]
     Indication: CARDIOMYOPATHY
     Route: 048
  11. BUMETANIDE [Concomitant]
     Indication: CARDIOMYOPATHY
     Route: 048
  12. NAPROXEN [Concomitant]
     Indication: RHEUMATOID ARTHRITIS
     Route: 048
     Dates: end: 20091001

REACTIONS (11)
  - ADVERSE DRUG REACTION [None]
  - ASTHENIA [None]
  - CONGESTIVE CARDIOMYOPATHY [None]
  - HEPATIC FAILURE [None]
  - HEPATITIS C [None]
  - HEPATITIS E [None]
  - INFECTION [None]
  - JAUNDICE [None]
  - LIVER DISORDER [None]
  - LIVER INJURY [None]
  - RENAL FAILURE [None]
